FAERS Safety Report 7805228-6 (Version None)
Quarter: 2011Q4

REPORT INFORMATION
  Report Type: 
  Country: None (occurrence: None)
  Receive Date: 20111010
  Receipt Date: 20110927
  Transmission Date: 20120403
  Serious: Yes (Other)
  Sender: FDA-Public Use
  Company Number: CA-ELI_LILLY_AND_COMPANY-CA201109007608

PATIENT
  Sex: Female

DRUGS (3)
  1. ZYPREXA [Suspect]
     Dosage: 5 MG, UNK
  2. NOZINAN [Concomitant]
  3. ZYPREXA [Suspect]
     Dosage: 15 MG, UNK
     Dates: start: 20021125

REACTIONS (6)
  - SENSORY LOSS [None]
  - DEAFNESS [None]
  - BLINDNESS [None]
  - DIABETES MELLITUS [None]
  - HYPERGLYCAEMIA [None]
  - WEIGHT INCREASED [None]
